FAERS Safety Report 6525753-8 (Version None)
Quarter: 2010Q1

REPORT INFORMATION
  Report Type: 
  Country: None (occurrence: None)
  Receive Date: 20100104
  Receipt Date: 20091221
  Transmission Date: 20100710
  Serious: Yes (Other)
  Sender: FDA-Public Use
  Company Number: US-PFIZER INC-2009279988

PATIENT
  Sex: Female
  Weight: 43.084 kg

DRUGS (3)
  1. SERTRALINE HCL [Suspect]
     Indication: ANXIETY
     Dosage: 12.5 MG, 1X/DAY
     Route: 048
     Dates: start: 20090926, end: 20090927
  2. CONCERTA [Concomitant]
  3. INFLUENZA VACCINE [Concomitant]
     Dosage: UNK
     Route: 045
     Dates: start: 20090924, end: 20090924

REACTIONS (6)
  - ABASIA [None]
  - FALL [None]
  - HYPERTONIA [None]
  - INJURY [None]
  - MUSCLE SPASMS [None]
  - MUSCLE TIGHTNESS [None]
